FAERS Safety Report 18572972 (Version 1)
Quarter: 2020Q4

REPORT INFORMATION
  Report Type: Spontaneous
  Country: JP (occurrence: JP)
  Receive Date: 20201203
  Receipt Date: 20201203
  Transmission Date: 20210114
  Serious: Yes (Death, Other)
  Sender: FDA-Public Use
  Company Number: JP-TAKEDA-2020TUS054627

PATIENT

DRUGS (3)
  1. RITUXIMAB. [Concomitant]
     Active Substance: RITUXIMAB
     Indication: LEUKAEMIA
     Dosage: UNK
     Route: 037
  2. ICLUSIG [Suspect]
     Active Substance: PONATINIB
     Indication: LEUKAEMIA
     Dosage: UNK
     Route: 065
  3. PREDNISOLONE. [Concomitant]
     Active Substance: PREDNISOLONE
     Indication: LEUKAEMIA
     Dosage: UNK
     Route: 065

REACTIONS (13)
  - Disease progression [Fatal]
  - Aspartate aminotransferase increased [Unknown]
  - Lymphopenia [Unknown]
  - Neutropenia [Unknown]
  - Product administered to patient of inappropriate age [Unknown]
  - Leukaemia recurrent [Fatal]
  - Thrombocytopenia [Unknown]
  - Alanine aminotransferase increased [Unknown]
  - Gamma-glutamyltransferase increased [Unknown]
  - Anaemia [Unknown]
  - Erythema multiforme [Unknown]
  - Lipase increased [Unknown]
  - Hypertension [Unknown]
